FAERS Safety Report 9566507 (Version 1)
Quarter: 2013Q3

REPORT INFORMATION
  Report Type: Spontaneous
  Country: US (occurrence: US)
  Receive Date: 20130930
  Receipt Date: 20130930
  Transmission Date: 20140515
  Serious: Yes (Hospitalization)
  Sender: FDA-Public Use
  Company Number: US-UCBSA-098576

PATIENT
  Age: 68 Year
  Sex: Female
  Weight: 87.89 kg

DRUGS (19)
  1. CIMZIA [Suspect]
     Indication: RHEUMATOID ARTHRITIS
     Dates: start: 20130722, end: 20130819
  2. LASIX [Concomitant]
     Route: 048
  3. LASIX [Concomitant]
     Dosage: INCREASED DOSE
     Route: 048
  4. LOPRESSOR [Concomitant]
  5. VASTEC [Concomitant]
     Dosage: 10 MG ONCE
  6. LISONPRIL [Concomitant]
  7. SOMA [Concomitant]
     Indication: MUSCLE SPASMS
  8. HYDROCODEONE [Concomitant]
     Dosage: 10/325
     Route: 048
  9. TRANXENDE [Concomitant]
  10. PRIMARIN [Concomitant]
     Indication: HYPERTENSION
     Dosage: DAILY DOSE: 1.25 MG
  11. CYMBALTA [Concomitant]
     Indication: DEPRESSION
     Dosage: DAILY DOSE: 60 MG
  12. CYMBALTA [Concomitant]
     Indication: PAIN
     Dosage: DAILY DOSE: 60 MG
  13. NEURONTIN [Concomitant]
     Indication: BACK PAIN
  14. CRESTOR [Concomitant]
     Indication: BLOOD CHOLESTEROL INCREASED
  15. SYNTHROID [Concomitant]
     Indication: HYPOTHYROIDISM
     Dosage: DAILY DOSE: 112 MCG
  16. MVI [Concomitant]
     Dosage: DAILY
  17. VIT D3 [Concomitant]
     Dosage: DAILY
  18. FISH OIL [Concomitant]
     Dosage: DAILY
  19. VITAMIN B12 [Concomitant]
     Dosage: DAILY

REACTIONS (8)
  - Joint swelling [Recovered/Resolved]
  - Chest pain [Recovered/Resolved]
  - Hypertension [Recovered/Resolved]
  - Intervertebral disc protrusion [Unknown]
  - Oedema peripheral [Unknown]
  - Pain in extremity [Unknown]
  - Pain [Unknown]
  - Oedema [Unknown]
